FAERS Safety Report 15347843 (Version 1)
Quarter: 2018Q3

REPORT INFORMATION
  Report Type: Spontaneous
  Country: US (occurrence: US)
  Receive Date: 20180904
  Receipt Date: 20180904
  Transmission Date: 20181010
  Serious: No
  Sender: FDA-Public Use
  Company Number: US-TEVA-2018-US-949667

PATIENT
  Sex: Female

DRUGS (2)
  1. PERCOCET [Concomitant]
     Active Substance: ACETAMINOPHEN\OXYCODONE HYDROCHLORIDE
     Route: 065
  2. ZOLPIDEM [Suspect]
     Active Substance: ZOLPIDEM\ZOLPIDEM TARTRATE
     Indication: INSOMNIA
     Route: 065
     Dates: start: 1991

REACTIONS (7)
  - Wrong technique in product usage process [Unknown]
  - Drug withdrawal syndrome [Unknown]
  - Headache [Unknown]
  - Nausea [Unknown]
  - Lethargy [Unknown]
  - Drug ineffective [Unknown]
  - Eye irritation [Unknown]

NARRATIVE: CASE EVENT DATE: 2018
